FAERS Safety Report 10950722 (Version 2)
Quarter: 2015Q1

REPORT INFORMATION
  Report Type: Spontaneous
  Country: JP (occurrence: JP)
  Receive Date: 20150324
  Receipt Date: 20150327
  Transmission Date: 20150721
  Serious: Yes (Hospitalization)
  Sender: FDA-Public Use
  Company Number: JP-PFIZER INC-2015087820

PATIENT
  Age: 7 Decade
  Sex: Male

DRUGS (3)
  1. SUTENT [Suspect]
     Active Substance: SUNITINIB MALATE
     Dosage: UNK
     Dates: end: 20130613
  2. SUTENT [Suspect]
     Active Substance: SUNITINIB MALATE
     Dosage: 3 CAPSULES, CYCLIC
  3. SUTENT [Suspect]
     Active Substance: SUNITINIB MALATE
     Indication: RENAL CELL CARCINOMA
     Dosage: 4 CAPSULES, ONE CYCLE OF 4-WEEK
     Route: 048
     Dates: start: 20120410

REACTIONS (7)
  - Disease progression [Not Recovered/Not Resolved]
  - Palmar-plantar erythrodysaesthesia syndrome [Recovered/Resolved]
  - Renal cell carcinoma [Not Recovered/Not Resolved]
  - Hypertension [Recovering/Resolving]
  - Platelet count decreased [Recovered/Resolved]
  - Neutrophil count decreased [Recovered/Resolved]
  - Pleural effusion [Recovered/Resolved]

NARRATIVE: CASE EVENT DATE: 20120508
